FAERS Safety Report 5405234-5 (Version None)
Quarter: 2007Q3

REPORT INFORMATION
  Report Type: 
  Country: None (occurrence: None)
  Receive Date: 20070803
  Receipt Date: 20070724
  Transmission Date: 20080115
  Serious: Yes (Hospitalization, Other)
  Sender: FDA-Public Use
  Company Number: JP-ROCHE-508459

PATIENT
  Age: 46 Year
  Sex: Male

DRUGS (1)
  1. TICLOPIDINE HCL [Suspect]
     Indication: CEREBRAL INFARCTION
     Route: 048

REACTIONS (4)
  - CEREBRAL AUTOSOMAL DOMINANT ARTERIOPATHY WITH SUBCORTICAL INFARCTS AND LEUKOENCEPHALOPATHY [None]
  - CEREBRAL INFARCTION [None]
  - DEMENTIA [None]
  - PUTAMEN HAEMORRHAGE [None]
